FAERS Safety Report 9334457 (Version 1)
Quarter: 2013Q2

REPORT INFORMATION
  Report Type: Spontaneous
  Country: US (occurrence: US)
  Receive Date: 20130606
  Receipt Date: 20130606
  Transmission Date: 20140414
  Serious: No
  Sender: FDA-Public Use
  Company Number: US-AMGEN-USASP2013021453

PATIENT
  Sex: Female

DRUGS (3)
  1. PROLIA [Suspect]
     Indication: OSTEOPENIA
     Dosage: UNK
     Dates: start: 20130315
  2. HYZAAR [Concomitant]
  3. SYNTHROID [Concomitant]

REACTIONS (2)
  - Nausea [Unknown]
  - Sleep disorder [Unknown]
